FAERS Safety Report 8408763-5 (Version None)
Quarter: 2012Q2

REPORT INFORMATION
  Report Type: 
  Country: None (occurrence: None)
  Receive Date: 20120604
  Receipt Date: 20120522
  Transmission Date: 20120825
  Serious: Yes (Other)
  Sender: FDA-Public Use
  Company Number: US-ELI_LILLY_AND_COMPANY-US201205008528

PATIENT
  Sex: Female

DRUGS (2)
  1. CYMBALTA [Suspect]
     Dosage: 30 MG, EACH EVENING
     Dates: start: 20120301
  2. PROZAC [Suspect]
     Dosage: UNK, UNKNOWN

REACTIONS (1)
  - WEIGHT INCREASED [None]
